FAERS Safety Report 5296391-2 (Version None)
Quarter: 2007Q2

REPORT INFORMATION
  Report Type: 
  Country: None (occurrence: None)
  Receive Date: 20070413
  Receipt Date: 20070403
  Transmission Date: 20071010
  Serious: Yes (Hospitalization)
  Sender: FDA-Public Use
  Company Number: US-GENENTECH-239339

PATIENT
  Sex: Male
  Weight: 118 kg

DRUGS (7)
  1. RSHAPO2L-TRAIL [Suspect]
     Indication: NON-HODGKIN'S LYMPHOMA
     Dosage: 952 MG, UNK
     Route: 042
     Dates: start: 20070326
  2. RITUXAN [Suspect]
     Indication: NON-HODGKIN'S LYMPHOMA
     Dosage: 896 MG, UNK
     Route: 042
     Dates: start: 20070323
  3. PROTONIX [Concomitant]
     Indication: DRUG USE FOR UNKNOWN INDICATION
  4. GLUCOPHAGE [Concomitant]
     Indication: DRUG USE FOR UNKNOWN INDICATION
  5. AMARYL [Concomitant]
     Indication: DRUG USE FOR UNKNOWN INDICATION
  6. AMBIEN [Concomitant]
     Indication: DRUG USE FOR UNKNOWN INDICATION
  7. MAGNESIUM [Concomitant]
     Indication: DRUG USE FOR UNKNOWN INDICATION

REACTIONS (1)
  - ILEUS PARALYTIC [None]
